FAERS Safety Report 11727610 (Version 3)
Quarter: 2017Q4

REPORT INFORMATION
  Report Type: Spontaneous
  Country: US (occurrence: US)
  Receive Date: 20151112
  Receipt Date: 20171107
  Transmission Date: 20180320
  Serious: Yes (Other)
  Sender: FDA-Public Use
  Company Number: US-ASTRAZENECA-2015SF08531

PATIENT
  Age: 27537 Day
  Sex: Female

DRUGS (3)
  1. ALLOPURINOL. [Concomitant]
     Active Substance: ALLOPURINOL
  2. LISINOPRIL. [Concomitant]
     Active Substance: LISINOPRIL
  3. FARXIGA [Suspect]
     Active Substance: DAPAGLIFLOZIN PROPANEDIOL
     Indication: TYPE 2 DIABETES MELLITUS
     Route: 048
     Dates: start: 20151001, end: 20151022

REACTIONS (10)
  - Pruritus [Recovering/Resolving]
  - Rash vesicular [Unknown]
  - Erythema [Recovering/Resolving]
  - Epidermal necrosis [Unknown]
  - Acute febrile neutrophilic dermatosis [Unknown]
  - Rash [Recovered/Resolved with Sequelae]
  - Blood blister [Unknown]
  - Photosensitivity reaction [Unknown]
  - Skin lesion [Unknown]
  - Inflammation [Unknown]

NARRATIVE: CASE EVENT DATE: 20151019
